FAERS Safety Report 9376203 (Version 2)
Quarter: 2013Q3

REPORT INFORMATION
  Report Type: Report from Study
  Country: JP (occurrence: JP)
  Receive Date: 20130701
  Receipt Date: 20130802
  Transmission Date: 20140515
  Serious: No
  Sender: FDA-Public Use
  Company Number: JP-ABBOTT-13X-087-1106335-00

PATIENT
  Age: 39 Year
  Sex: Male

DRUGS (5)
  1. LIPACREON [Suspect]
     Indication: PANCREATIC INSUFFICIENCY
     Dosage: SACHET, DAILY DOSE: 1800 MG
     Route: 048
     Dates: start: 20120827
  2. ESOMEPRAZOLE MAGNESIUM [Concomitant]
     Indication: PANCREATITIS CHRONIC
     Route: 048
     Dates: start: 20130325
  3. ESOMEPRAZOLE MAGNESIUM [Concomitant]
     Indication: PANCREATITIS CHRONIC
  4. FAMOTIDINE [Concomitant]
     Indication: ALCOHOLIC PANCREATITIS
     Route: 048
     Dates: start: 20130325
  5. FAMOTIDINE [Concomitant]
     Indication: ALCOHOLIC PANCREATITIS

REACTIONS (2)
  - Protein total decreased [Recovered/Resolved]
  - Decreased appetite [Recovering/Resolving]
